FAERS Safety Report 9126566 (Version 2)
Quarter: 2014Q1

REPORT INFORMATION
  Report Type: Spontaneous
  Country: US (occurrence: US)
  Receive Date: 20130117
  Receipt Date: 20140224
  Transmission Date: 20141002
  Serious: Yes (Life-Threatening, Hospitalization, Disabling)
  Sender: FDA-Public Use
  Company Number: US-BAYER-2013-005091

PATIENT
  Age: 36 Year
  Sex: Female
  Weight: 81.63 kg

DRUGS (12)
  1. YASMIN [Suspect]
  2. YAZ [Suspect]
  3. OCELLA [Suspect]
  4. LISINOPRIL [Concomitant]
     Dosage: 20 MG, UNK
     Route: 048
     Dates: start: 20100514
  5. CLINDAMYCIN [Concomitant]
     Dosage: UNK
     Route: 061
     Dates: start: 20100618
  6. TRETINOIN [Concomitant]
     Dosage: 0.05 %, UNK
     Route: 061
     Dates: start: 20100618
  7. IBUPROFEN [Concomitant]
     Dosage: 800 MG, UNK
     Route: 048
     Dates: start: 20100707
  8. NAPROSYN [Concomitant]
     Dosage: UNK
     Route: 048
     Dates: start: 20100707
  9. KETOROLAC [Concomitant]
     Dosage: 30 MG/ML, UNK
     Dates: start: 20100708
  10. ACYCLOVIR [ACICLOVIR] [Concomitant]
     Dosage: 200 MG, UNK
     Route: 048
     Dates: start: 20100709
  11. NEXIUM [Concomitant]
  12. PERCOCET [Concomitant]

REACTIONS (9)
  - Pulmonary embolism [Recovered/Resolved]
  - Deep vein thrombosis [None]
  - Injury [Recovered/Resolved]
  - Pain [None]
  - General physical health deterioration [Recovered/Resolved]
  - Anxiety [None]
  - Anhedonia [None]
  - Emotional distress [None]
  - Pain [Recovered/Resolved]
